FAERS Safety Report 5715441-X (Version None)
Quarter: 2008Q2

REPORT INFORMATION
  Report Type: 
  Country: None (occurrence: None)
  Receive Date: 20080423
  Receipt Date: 20080411
  Transmission Date: 20081010
  Serious: Yes (Other)
  Sender: FDA-Public Use
  Company Number: US-PFIZER INC-2008034055

PATIENT
  Sex: Female
  Weight: 86.2 kg

DRUGS (4)
  1. CHANTIX [Suspect]
     Indication: SMOKING CESSATION THERAPY
  2. ESTRATEST [Concomitant]
  3. ATENOLOL [Concomitant]
  4. TRIAMTERENE AND HYDROCHLOROTHIAZIDE [Concomitant]

REACTIONS (5)
  - HEADACHE [None]
  - JAW CYST [None]
  - LYMPHADENOPATHY [None]
  - NECK INJURY [None]
  - NECK MASS [None]
